FAERS Safety Report 8331527-8 (Version None)
Quarter: 2012Q2

REPORT INFORMATION
  Report Type: 
  Country: None (occurrence: None)
  Receive Date: 20120502
  Receipt Date: 20120419
  Transmission Date: 20120825
  Serious: No
  Sender: FDA-Public Use
  Company Number: US-AMGEN-USASP2012024893

PATIENT
  Age: 47 Year
  Sex: Female
  Weight: 90.703 kg

DRUGS (2)
  1. ENBREL [Suspect]
     Indication: ANKYLOSING SPONDYLITIS
     Dosage: UNK
     Dates: start: 20111201, end: 20120301
  2. HUMIRA [Concomitant]
     Dosage: 40 MG, Q2WK
     Route: 058
     Dates: start: 20120320

REACTIONS (1)
  - DRUG INEFFECTIVE [None]
